FAERS Safety Report 7717159-0 (Version None)
Quarter: 2011Q3

REPORT INFORMATION
  Report Type: 
  Country: None (occurrence: None)
  Receive Date: 20110830
  Receipt Date: 20110824
  Transmission Date: 20111222
  Serious: Yes (Other)
  Sender: FDA-Public Use
  Company Number: US-PAR PHARMACEUTICAL, INC-2011SCPR003178

PATIENT

DRUGS (2)
  1. CABERGOLINE [Suspect]
     Dosage: TWICE WEEKLY
     Route: 048
     Dates: end: 20110401
  2. CABERGOLINE [Suspect]
     Indication: PITUITARY TUMOUR
     Dosage: 0.25 MG, TWICE WEEKLY
     Route: 048
     Dates: end: 20110201

REACTIONS (4)
  - LIP SWELLING [None]
  - DRUG HYPERSENSITIVITY [None]
  - OEDEMA PERIPHERAL [None]
  - SWOLLEN TONGUE [None]
